FAERS Safety Report 6905982-1 (Version None)
Quarter: 2010Q3

REPORT INFORMATION
  Report Type: 
  Country: None (occurrence: None)
  Receive Date: 20100802
  Receipt Date: 19950208
  Transmission Date: 20110219
  Serious: Yes (Hospitalization)
  Sender: FDA-Public Use
  Company Number: LEO-2010-00645

PATIENT
  Age: 63 Year
  Sex: Female
  Weight: 53 kg

DRUGS (14)
  1. DOVONEX [Suspect]
     Indication: PSORIASIS
     Dosage: TOPICAL
     Route: 061
     Dates: start: 19940822
  2. WARFARIN SODIUM [Suspect]
     Indication: PRODUCT USED FOR UNKNOWN INDICATION
     Dosage: 1 MG BD NOCTE OR 3 MG), ORAL
     Route: 048
  3. ZANTAC 150 [Concomitant]
  4. TEMAZEPAM [Concomitant]
  5. DIGOXIN [Concomitant]
  6. INNOVACE (ENALAPRIL MALEATE) [Concomitant]
  7. POLYTAR LIQUID (COAL TAR) [Concomitant]
  8. HYDROCORTONE [Concomitant]
  9. TRIMOVATE (NYSTATIN) (NYSTATIN, OXYTETRACYCLINE CALCIUM, CLOBETASONE B [Concomitant]
  10. FRUSEMIDE (FUROSEMIDE) (FUROSEMIDE) [Concomitant]
  11. FELDENE [Concomitant]
  12. METOLAZONE [Concomitant]
  13. FOLIC ACID [Concomitant]
  14. FERROUS SULPHATE ANHYDROUS (FERROUS SULFATE) (FERROUS SULFATE) [Concomitant]

REACTIONS (3)
  - DYSGEUSIA [None]
  - GINGIVAL BLEEDING [None]
  - POTENTIATING DRUG INTERACTION [None]
